FAERS Safety Report 22206446 (Version 2)
Quarter: 2023Q2

REPORT INFORMATION
  Report Type: Report from Study
  Country: NG (occurrence: NG)
  Receive Date: 20230413
  Receipt Date: 20230424
  Transmission Date: 20230722
  Serious: Yes (Hospitalization, Other)
  Sender: FDA-Public Use
  Company Number: NG-002147023-NVSC2023NG082132

PATIENT
  Age: 38 Year
  Sex: Female
  Weight: 105 kg

DRUGS (6)
  1. SACUBITRIL\VALSARTAN [Suspect]
     Active Substance: SACUBITRIL\VALSARTAN
     Indication: Cardiac failure
     Dosage: 50 MG, BID
     Route: 048
  2. SACUBITRIL\VALSARTAN [Suspect]
     Active Substance: SACUBITRIL\VALSARTAN
     Dosage: 25 MG, BID
     Route: 048
     Dates: start: 20221123
  3. SACUBITRIL\VALSARTAN [Suspect]
     Active Substance: SACUBITRIL\VALSARTAN
     Dosage: 25 MG, QD
     Route: 065
     Dates: start: 20230308
  4. SACUBITRIL\VALSARTAN [Suspect]
     Active Substance: SACUBITRIL\VALSARTAN
     Dosage: 25 MG, BID
     Route: 065
     Dates: start: 20230322
  5. SACUBITRIL\VALSARTAN [Suspect]
     Active Substance: SACUBITRIL\VALSARTAN
     Dosage: UNK
     Route: 065
     Dates: start: 20230405, end: 20230405
  6. ASPIRIN [Concomitant]
     Active Substance: ASPIRIN
     Indication: Product used for unknown indication
     Route: 065

REACTIONS (10)
  - Abdominal distension [Recovering/Resolving]
  - Peripheral swelling [Recovering/Resolving]
  - Palpitations [Recovering/Resolving]
  - Limb discomfort [Recovering/Resolving]
  - Pain [Recovering/Resolving]
  - Swelling face [Recovering/Resolving]
  - Hypotension [Recovering/Resolving]
  - Oedema peripheral [Not Recovered/Not Resolved]
  - Pain in extremity [Recovering/Resolving]
  - Oedema [Unknown]

NARRATIVE: CASE EVENT DATE: 20230404
